FAERS Safety Report 21211734 (Version 1)
Quarter: 2022Q3

REPORT INFORMATION
  Report Type: Spontaneous
  Country: US (occurrence: US)
  Receive Date: 20220815
  Receipt Date: 20220815
  Transmission Date: 20221026
  Serious: No
  Sender: FDA-Public Use
  Company Number: US-GALDERMA-US2022009964

PATIENT

DRUGS (15)
  1. PROACTIV MD ADAPALENE ACNE TREATMENT [Suspect]
     Active Substance: ADAPALENE
     Indication: Product used for unknown indication
     Dosage: 1 DOSAGE FORM, BID, TWICE A DAY
     Route: 061
     Dates: start: 2022
  2. PROACTIV MD ADAPALENE ACNE TREATMENT [Suspect]
     Active Substance: ADAPALENE
     Dosage: 1 DOSAGE FORM, QD, DAILY
     Route: 061
  3. PROACTIV MD ADAPALENE ACNE TREATMENT [Suspect]
     Active Substance: ADAPALENE
     Dosage: 1 DOSAGE FORM, QOD, EVERY OTHER DAY
     Route: 061
     Dates: end: 202203
  4. Proactiv MD Ultra Gentle Cleanser [Concomitant]
     Indication: Product used for unknown indication
     Dosage: 1 DOSAGE FORM, BID, TWICE A DAY
     Route: 061
     Dates: start: 2022
  5. Proactiv MD Ultra Gentle Cleanser [Concomitant]
     Dosage: 1 DOSAGE FORM, QD, DAILY
     Route: 061
  6. Proactiv MD Ultra Gentle Cleanser [Concomitant]
     Dosage: 1 DOSAGE FORM, QOD, EVERY OTHER DAY
     Route: 061
     Dates: end: 202203
  7. Proactiv MD Ultra Hydrating Moisturizer [Concomitant]
     Indication: Product used for unknown indication
     Dosage: 1 DOSAGE FORM, BID, TWICE DAILY
     Route: 061
     Dates: start: 2022
  8. Proactiv MD Ultra Hydrating Moisturizer [Concomitant]
     Dosage: 1 DOSAGE FORM, QD, DAILY
     Route: 061
  9. Proactiv MD Ultra Hydrating Moisturizer [Concomitant]
     Dosage: 1 DOSAGE FORM, QOD, EVERY OTHER DAY
     Route: 061
     Dates: end: 202203
  10. PROACTIV ACNE BODY WASH [Concomitant]
     Active Substance: SALICYLIC ACID
     Indication: Product used for unknown indication
     Dosage: 1 DOSAGE FORM, BID, 2 OR MORE TIMES A DAY
     Route: 061
     Dates: start: 2022
  11. PROACTIV ACNE BODY WASH [Concomitant]
     Active Substance: SALICYLIC ACID
     Dosage: 1 DOSAGE FORM, QD, DAILY
     Route: 061
  12. PROACTIV ACNE BODY WASH [Concomitant]
     Active Substance: SALICYLIC ACID
     Dosage: 1 DOSAGE FORM, QOD, EVERY OTHER DAY
     Route: 061
     Dates: end: 202203
  13. Proactiv Amazonian Clay Mask [Concomitant]
     Indication: Product used for unknown indication
     Dosage: 1 DOSAGE FORM, BID, TWICE A DAY
     Route: 061
     Dates: start: 2022
  14. Proactiv Amazonian Clay Mask [Concomitant]
     Dosage: 1 DOSAGE FORM, QD, DAILY
     Route: 061
  15. Proactiv Amazonian Clay Mask [Concomitant]
     Dosage: 1 DOSAGE FORM, QOD, EVERY OTHER DAY
     Route: 061
     Dates: end: 202203

REACTIONS (6)
  - Dry skin [Recovered/Resolved]
  - Pruritus [Recovered/Resolved]
  - Drug ineffective [Unknown]
  - Product use issue [Recovered/Resolved]
  - Overdose [Recovered/Resolved]
  - Underdose [Recovered/Resolved]

NARRATIVE: CASE EVENT DATE: 20220101
